FAERS Safety Report 15764677 (Version 2)
Quarter: 2019Q1

REPORT INFORMATION
  Report Type: Report from Study
  Country: CO (occurrence: CO)
  Receive Date: 20181227
  Receipt Date: 20190117
  Transmission Date: 20190417
  Serious: Yes (Hospitalization, Other)
  Sender: FDA-Public Use
  Company Number: CO-ASTELLAS-2018US040410

PATIENT
  Age: 50 Year
  Sex: Female

DRUGS (3)
  1. TACROLIMUS. [Suspect]
     Active Substance: TACROLIMUS
     Indication: RENAL TRANSPLANT
     Dosage: 5 MG (5 MG CAPSULE AND 4 CAPSULES OF 1 MG), ONCE DAILY
     Route: 048
     Dates: start: 20150627
  2. TACROLIMUS. [Suspect]
     Active Substance: TACROLIMUS
     Indication: RENAL TRANSPLANT
     Dosage: 4 MG (5 MG CAPSULE AND 4 CAPSULES OF 1 MG), ONCE DAILY
     Route: 048
     Dates: start: 20150627
  3. TACROLIMUS. [Suspect]
     Active Substance: TACROLIMUS
     Indication: RENAL TRANSPLANT
     Dosage: 4 MG (5 MG CAPSULE AND 4 CAPSULES OF 1 MG) ONCE DAILY
     Route: 048
     Dates: start: 201808

REACTIONS (6)
  - Product dispensing error [Unknown]
  - Cerebral ischaemia [Unknown]
  - Migraine [Unknown]
  - Urinary tract infection [Unknown]
  - Blood pressure increased [Unknown]
  - Blood glucose increased [Unknown]

NARRATIVE: CASE EVENT DATE: 201808
